FAERS Safety Report 24384461 (Version 2)
Quarter: 2024Q4

REPORT INFORMATION
  Report Type: Spontaneous
  Country: US (occurrence: US)
  Receive Date: 20241001
  Receipt Date: 20241017
  Transmission Date: 20250115
  Serious: Yes (Other)
  Sender: VERO BIOTECH
  Company Number: US-VEROBIOTECH-2024USVEROSPO00236

PATIENT
  Age: 89 Year
  Sex: Male

DRUGS (1)
  1. GENOSYL [Suspect]
     Active Substance: NITRIC OXIDE
     Indication: Product used for unknown indication

REACTIONS (3)
  - Cardio-respiratory arrest [Unknown]
  - Underdose [Unknown]
  - Device delivery system issue [Unknown]
